FAERS Safety Report 6567226-2 (Version None)
Quarter: 2010Q1

REPORT INFORMATION
  Report Type: 
  Country: None (occurrence: None)
  Receive Date: 20100202
  Receipt Date: 20100129
  Transmission Date: 20100710
  Serious: Yes (Other)
  Sender: FDA-Public Use
  Company Number: SE-WYE-G04488409

PATIENT
  Age: 37 Year
  Sex: Female

DRUGS (5)
  1. EFFEXOR [Suspect]
     Indication: DEPRESSION
     Dosage: UNKNOWN
     Dates: start: 20070101, end: 20090601
  2. EFFEXOR [Suspect]
     Route: 048
     Dates: start: 20090310, end: 20090315
  3. EFFEXOR [Suspect]
     Dates: start: 20090316, end: 20090416
  4. EFFEXOR [Suspect]
     Dates: start: 20090417
  5. EFFEXOR [Suspect]
     Dates: start: 20090101

REACTIONS (3)
  - CLONIC CONVULSION [None]
  - LOSS OF CONSCIOUSNESS [None]
  - MUSCLE TWITCHING [None]
